FAERS Safety Report 11789605 (Version 1)
Quarter: 2015Q4

REPORT INFORMATION
  Report Type: Spontaneous
  Country: US (occurrence: None)
  Receive Date: 20151130
  Receipt Date: 20151130
  Transmission Date: 20160305
  Serious: Yes (Hospitalization)
  Sender: FDA-Public Use
  Company Number: None

PATIENT
  Age: 70 Year
  Sex: Male
  Weight: 61.4 kg

DRUGS (1)
  1. FUROSEMIDE. [Suspect]
     Active Substance: FUROSEMIDE
     Indication: CARDIAC FAILURE CONGESTIVE
     Route: 048
     Dates: start: 20060224, end: 20151123

REACTIONS (3)
  - Hypophagia [None]
  - Acute kidney injury [None]
  - Blood viscosity increased [None]

NARRATIVE: CASE EVENT DATE: 20151123
